FAERS Safety Report 5522607-0 (Version None)
Quarter: 2007Q4

REPORT INFORMATION
  Report Type: 
  Country: None (occurrence: None)
  Receive Date: 20071120
  Receipt Date: 20071112
  Transmission Date: 20080405
  Serious: Yes (Other)
  Sender: FDA-Public Use
  Company Number: FR-SHR-FR-2006-002253

PATIENT
  Age: 46 Year
  Sex: Female
  Weight: 89 kg

DRUGS (4)
  1. MIRENA [Suspect]
     Indication: MENOMETRORRHAGIA
     Dosage: 20 A?G, CONT
     Route: 015
     Dates: start: 20041101, end: 20060316
  2. HYZAAR [Concomitant]
     Dosage: 1 DF, UNK
     Route: 048
     Dates: start: 20010101
  3. LEXOMIL [Concomitant]
     Dosage: .75 TAB(S), 1X/DAY
     Route: 048
     Dates: start: 19810101
  4. STILNOX                                 /FRA/ [Concomitant]
     Dosage: 1 DF, 1X/DAY
     Route: 048
     Dates: start: 20050101

REACTIONS (1)
  - ANGIOEDEMA [None]
